FAERS Safety Report 12640451 (Version 2)
Quarter: 2020Q1

REPORT INFORMATION
  Report Type: Spontaneous
  Country: CA (occurrence: CA)
  Receive Date: 20160810
  Receipt Date: 20200226
  Transmission Date: 20200409
  Serious: Yes (Other)
  Sender: FDA-Public Use
  Company Number: CA-PFIZER INC-2016366703

PATIENT
  Age: 61 Year
  Sex: Female

DRUGS (3)
  1. METHOTREXATE SODIUM. [Suspect]
     Active Substance: METHOTREXATE SODIUM
     Indication: RHEUMATOID ARTHRITIS
     Dosage: 20 MG, WEEKLY
     Route: 058
     Dates: end: 201602
  2. METHOTREXATE SODIUM. [Suspect]
     Active Substance: METHOTREXATE SODIUM
     Dosage: 20 MG, WEEKLY
     Route: 048
     Dates: start: 201603
  3. PLAQUENIL [Concomitant]
     Active Substance: HYDROXYCHLOROQUINE SULFATE
     Indication: RHEUMATOID ARTHRITIS
     Dosage: 400 MG, 1X/DAY
     Route: 048

REACTIONS (10)
  - Off label use [Unknown]
  - Product use issue [Unknown]
  - Pain in extremity [Unknown]
  - Arthralgia [Unknown]
  - Loss of consciousness [Unknown]
  - Fall [Unknown]
  - Pain [Unknown]
  - Depression [Not Recovered/Not Resolved]
  - Vision blurred [Unknown]
  - Rib fracture [Unknown]
